FAERS Safety Report 12402563 (Version 2)
Quarter: 2016Q2

REPORT INFORMATION
  Report Type: Spontaneous
  Country: US (occurrence: US)
  Receive Date: 20160525
  Receipt Date: 20160527
  Transmission Date: 20160815
  Serious: No
  Sender: FDA-Public Use
  Company Number: US-SA-2016SA056390

PATIENT
  Age: 69 Year
  Sex: Male

DRUGS (4)
  1. PLAVIX [Suspect]
     Active Substance: CLOPIDOGREL BISULFATE
     Indication: CARDIOVASCULAR DISORDER
     Route: 065
  2. LANTUS SOLOSTAR [Suspect]
     Active Substance: INSULIN GLARGINE
     Indication: TYPE 2 DIABETES MELLITUS
     Dosage: DOSE:60 UNIT(S)
     Route: 065
     Dates: start: 2011
  3. NOVOLOG [Concomitant]
     Active Substance: INSULIN ASPART
     Route: 065
  4. SOLOSTAR [Concomitant]
     Active Substance: DEVICE
     Route: 065

REACTIONS (5)
  - Subcutaneous haematoma [Unknown]
  - Skin haemorrhage [Unknown]
  - Glycosylated haemoglobin increased [Unknown]
  - Blood glucose increased [Unknown]
  - Blood glucose decreased [Unknown]
